FAERS Safety Report 9909641 (Version 1)
Quarter: 2014Q1

REPORT INFORMATION
  Report Type: Spontaneous
  Country: AU (occurrence: AU)
  Receive Date: 20140219
  Receipt Date: 20140219
  Transmission Date: 20141002
  Serious: Yes (Other)
  Sender: FDA-Public Use
  Company Number: AU-GLAXOSMITHKLINE-B0966479A

PATIENT
  Sex: Female

DRUGS (2)
  1. SERETIDE ACCUHALER [Suspect]
     Indication: PRODUCT USED FOR UNKNOWN INDICATION
     Route: 055
  2. ACTONEL [Concomitant]

REACTIONS (1)
  - Candida infection [Recovered/Resolved]
